FAERS Safety Report 7269742-7 (Version None)
Quarter: 2011Q1

REPORT INFORMATION
  Report Type: 
  Country: None (occurrence: None)
  Receive Date: 20110202
  Receipt Date: 20110124
  Transmission Date: 20110831
  Serious: Yes (Hospitalization, Other)
  Sender: FDA-Public Use
  Company Number: DE-JNJFOC-20100905560

PATIENT
  Age: 38 Year
  Sex: Male

DRUGS (6)
  1. CLOPIDOGREL [Concomitant]
     Indication: ILL-DEFINED DISORDER
  2. SIMVASTATIN [Concomitant]
     Indication: ILL-DEFINED DISORDER
  3. ABCIXIMAB [Suspect]
     Indication: MYOCARDIAL INFARCTION
     Route: 042
  4. ACETYLSALICYLIC ACID SRT [Concomitant]
     Indication: ILL-DEFINED DISORDER
  5. REOPRO [Suspect]
     Indication: MYOCARDIAL INFARCTION
     Route: 022
  6. RAMIPRIL [Concomitant]
     Indication: ILL-DEFINED DISORDER

REACTIONS (3)
  - PULMONARY OEDEMA [None]
  - ALCOHOL WITHDRAWAL SYNDROME [None]
  - INCORRECT ROUTE OF DRUG ADMINISTRATION [None]
